FAERS Safety Report 5093538-8 (Version None)
Quarter: 2006Q3

REPORT INFORMATION
  Report Type: 
  Country: None (occurrence: None)
  Receive Date: 20060731
  Receipt Date: 20060414
  Transmission Date: 20061208
  Serious: No
  Sender: FDA-Public Use
  Company Number: 2006PV012072

PATIENT
  Age: 63 Year
  Sex: Male

DRUGS (5)
  1. BYETTA [Suspect]
     Indication: DIABETES MELLITUS NON-INSULIN-DEPENDENT
     Dosage: 10 MCG, BID; SC, 5 MCG, BID, SC
     Route: 058
     Dates: start: 20060221, end: 20060306
  2. BYETTA [Suspect]
     Indication: DIABETES MELLITUS NON-INSULIN-DEPENDENT
     Dosage: 10 MCG, BID; SC, 5 MCG, BID, SC
     Route: 058
     Dates: start: 20060307
  3. PRANDIN [Concomitant]
  4. METFORMIN [Concomitant]
  5. METFORMIN [Concomitant]

REACTIONS (3)
  - FEELING ABNORMAL [None]
  - NAUSEA [None]
  - STOMACH DISCOMFORT [None]
